FAERS Safety Report 9027211 (Version 2)
Quarter: 2013Q4

REPORT INFORMATION
  Report Type: Report from Study
  Country: CN (occurrence: CN)
  Receive Date: 20130123
  Receipt Date: 20131009
  Transmission Date: 20140711
  Serious: Yes (Hospitalization, Other)
  Sender: FDA-Public Use
  Company Number: CN-GILEAD-2012-0066413

PATIENT
  Age: 34 Year
  Sex: Male

DRUGS (6)
  1. BLINDED ADEFOVIR DIPIVOXIL [Suspect]
     Indication: HEPATITIS B
     Dosage: UNK
     Dates: start: 20110727, end: 20120626
  2. BLINDED TENOFOVIR DISOPROXIL FUMARATE [Suspect]
     Indication: HEPATITIS B
     Dosage: UNK
     Dates: start: 20110727, end: 20120626
  3. TENOFOVIR DISOPROXIL FUMARATE [Suspect]
     Dosage: UNK
     Dates: start: 20120627, end: 20121001
  4. TENOFOVIR DISOPROXIL FUMARATE [Suspect]
     Dosage: UNK
     Dates: start: 20121016
  5. TRIMEBUTINE [Concomitant]
  6. WEISHU GRANULES [Concomitant]

REACTIONS (1)
  - Upper gastrointestinal haemorrhage [Recovered/Resolved]
